FAERS Safety Report 10254063 (Version 1)
Quarter: 2014Q2

REPORT INFORMATION
  Report Type: Spontaneous
  Country: DE (occurrence: DE)
  Receive Date: 20140623
  Receipt Date: 20140623
  Transmission Date: 20141212
  Serious: Yes (Hospitalization)
  Sender: FDA-Public Use
  Company Number: DE-009507513-1406DEU010668

PATIENT
  Sex: Male

DRUGS (1)
  1. VELMETIA [Suspect]
     Indication: DIABETES MELLITUS
     Dosage: 50 MG/1000 MG
     Route: 048

REACTIONS (1)
  - Psoriasis [Recovered/Resolved]
